FAERS Safety Report 6648898-0 (Version None)
Quarter: 2010Q1

REPORT INFORMATION
  Report Type: 
  Country: None (occurrence: None)
  Receive Date: 20100319
  Receipt Date: 20100302
  Transmission Date: 20100710
  Serious: Yes (Other)
  Sender: FDA-Public Use
  Company Number: 2010-00228

PATIENT
  Age: 74 Year
  Sex: Male
  Weight: 77 kg

DRUGS (10)
  1. RAMIPRIL [Suspect]
     Indication: DRUG USE FOR UNKNOWN INDICATION
     Dosage: 1.25 MG (1 IN 1 D), ORAL
     Route: 048
     Dates: start: 20071128, end: 20100203
  2. ARANESP [Suspect]
     Indication: RENAL FAILURE CHRONIC
     Dates: end: 20100203
  3. VITAMIN D+VITAMIN D SUBSTANCES (ALFACALCIDOL) [Concomitant]
  4. FLUOROURACIL [Concomitant]
  5. ATORVASTATIN [Concomitant]
  6. CYCLOPHOSPHAMIDE [Concomitant]
  7. DEXAMETHASONE [Concomitant]
  8. RANITIDINE [Concomitant]
  9. THALIDOMIDE [Concomitant]
  10. WARFARIN SODIUM [Concomitant]

REACTIONS (9)
  - BLOOD CREATININE INCREASED [None]
  - BLOOD UREA INCREASED [None]
  - ERYTHROPOIESIS ABNORMAL [None]
  - HAEMATOCRIT DECREASED [None]
  - HAEMOGLOBIN DECREASED [None]
  - MARROW HYPERPLASIA [None]
  - MEGAKARYOCYTES INCREASED [None]
  - PANCYTOPENIA [None]
  - PARAPROTEINAEMIA [None]
